FAERS Safety Report 7998796-5 (Version None)
Quarter: 2011Q4

REPORT INFORMATION
  Report Type: 
  Country: None (occurrence: None)
  Receive Date: 20111221
  Receipt Date: 20111215
  Transmission Date: 20120403
  Serious: Yes (Hospitalization)
  Sender: FDA-Public Use
  Company Number: US-GLAXOSMITHKLINE-A0817999A

PATIENT
  Age: 63 Year
  Sex: Female
  Weight: 136.4 kg

DRUGS (1)
  1. ROSIGLITAZONE [Suspect]
     Indication: DIABETES MELLITUS
     Route: 048

REACTIONS (5)
  - ANAEMIA [None]
  - OSTEOPOROSIS [None]
  - OEDEMA [None]
  - CARDIAC FAILURE CONGESTIVE [None]
  - FEMUR FRACTURE [None]
